FAERS Safety Report 8003256-1 (Version None)
Quarter: 2011Q4

REPORT INFORMATION
  Report Type: 
  Country: None (occurrence: None)
  Receive Date: 20111222
  Receipt Date: 20111219
  Transmission Date: 20120403
  Serious: Yes (Death)
  Sender: FDA-Public Use
  Company Number: US-PFIZER INC-2011308987

PATIENT
  Age: 52 Year
  Sex: Female

DRUGS (4)
  1. PROGESTIN INJ [Suspect]
  2. TRAMADOL HCL [Suspect]
  3. LOTENSIN [Suspect]
  4. AMLODIPINE BESYLATE [Suspect]

REACTIONS (2)
  - COMPLETED SUICIDE [None]
  - TOXICITY TO VARIOUS AGENTS [None]
